FAERS Safety Report 8822920 (Version 2)
Quarter: 2012Q4

REPORT INFORMATION
  Report Type: 
  Country: US (occurrence: US)
  Receive Date: 20121003
  Receipt Date: 20121105
  Transmission Date: 20130627
  Serious: Yes (Other)
  Sender: FDA-Public Use
  Company Number: PHEH2012US019165

PATIENT
  Age: 75 Year
  Sex: Male

DRUGS (1)
  1. EXELON PATCH [Suspect]
     Dosage: 9.5 mg, UNK
     Route: 062

REACTIONS (3)
  - Neuropathy peripheral [Unknown]
  - Fall [Unknown]
  - Gait disturbance [Not Recovered/Not Resolved]
